FAERS Safety Report 5980179-0 (Version None)
Quarter: 2008Q4

REPORT INFORMATION
  Report Type: 
  Country: None (occurrence: None)
  Receive Date: 20081202
  Receipt Date: 20081202
  Transmission Date: 20090506
  Serious: Yes (Disabling)
  Sender: FDA-Public Use
  Company Number: None

PATIENT
  Age: 50 Year
  Sex: Male
  Weight: 64.4108 kg

DRUGS (1)
  1. OXCARBAZEPINE [Suspect]
     Indication: SCHIZOAFFECTIVE DISORDER
     Dosage: 1200MG 300MG QAM+900MG OH PO
     Route: 048
     Dates: start: 20081106, end: 20081108

REACTIONS (1)
  - HYPONATRAEMIA [None]
